FAERS Safety Report 5418230-9 (Version None)
Quarter: 2007Q3

REPORT INFORMATION
  Report Type: 
  Country: None (occurrence: None)
  Receive Date: 20070817
  Receipt Date: 20070807
  Transmission Date: 20080115
  Serious: Yes (Other)
  Sender: FDA-Public Use
  Company Number: MX-ROCHE-510835

PATIENT
  Age: 75 Year
  Sex: Female
  Weight: 72 kg

DRUGS (3)
  1. XENICAL [Suspect]
     Indication: OVERWEIGHT
     Route: 048
     Dates: start: 20070301
  2. ENALAPRIL MALEATE [Concomitant]
     Indication: HYPERTENSION
     Route: 048
     Dates: start: 20020101
  3. 1 CONCOMITANT DRUG [Concomitant]
     Indication: HYPERTENSION
     Dosage: DRUG: VALAPAMIL. THERAPY REPORTED AS DAILY.
     Route: 048
     Dates: start: 20020101

REACTIONS (1)
  - CONSTIPATION [None]
